FAERS Safety Report 10225004 (Version 3)
Quarter: 2020Q1

REPORT INFORMATION
  Report Type: Spontaneous
  Country: CA (occurrence: CA)
  Receive Date: 20140609
  Receipt Date: 20200318
  Transmission Date: 20200409
  Serious: Yes (Other)
  Sender: FDA-Public Use
  Company Number: CA-PFIZER INC-2014153075

PATIENT
  Age: 8 Week

DRUGS (15)
  1. ISENTRESS [Suspect]
     Active Substance: RALTEGRAVIR POTASSIUM
     Dosage: 400 MG, 2X/DAY
     Route: 064
  2. ZIDOVUDINE. [Suspect]
     Active Substance: ZIDOVUDINE
     Dosage: 300 MG, 2X/DAY
     Route: 064
  3. INTELENCE [Suspect]
     Active Substance: ETRAVIRINE
     Dosage: 200 MG, 2X/DAY
     Route: 064
  4. PREZISTA [Suspect]
     Active Substance: DARUNAVIR ETHANOLATE
     Dosage: 600 MG, 2X/DAY
     Route: 064
  5. ACICLOVIR [Suspect]
     Active Substance: ACYCLOVIR
     Dosage: UNK
     Route: 064
  6. BACTRIM [Suspect]
     Active Substance: SULFAMETHOXAZOLE\TRIMETHOPRIM
     Dosage: 400 MG, 2X/DAY
     Route: 064
  7. TENOFOVIR [Suspect]
     Active Substance: TENOFOVIR
     Dosage: 300 MG, 1X/DAY
     Route: 064
  8. FOLIC ACID. [Concomitant]
     Active Substance: FOLIC ACID
     Dosage: UNK
  9. IRON [Concomitant]
     Active Substance: IRON
     Dosage: UNK
  10. RITONAVIR. [Suspect]
     Active Substance: RITONAVIR
     Dosage: 100 MG, 2X/DAY
     Route: 064
  11. MAGNESIUM GLUCONATE [Concomitant]
     Active Substance: MAGNESIUM GLUCONATE
     Dosage: UNK
  12. ABACAVIR. [Suspect]
     Active Substance: ABACAVIR
     Dosage: 300 MG, 2X/DAY
     Route: 064
  13. LAMIVUDINE. [Suspect]
     Active Substance: LAMIVUDINE
     Dosage: 150 MG, 2X/DAY
     Route: 064
  14. AZITHROMYCIN ANHYDROUS. [Suspect]
     Active Substance: AZITHROMYCIN ANHYDROUS
     Dosage: 2 DF, DAILY
     Route: 064
  15. PRENATAL VITAMINS [Concomitant]
     Active Substance: VITAMINS
     Dosage: UNK

REACTIONS (2)
  - Anaemia [Recovered/Resolved]
  - Maternal exposure during pregnancy [Recovered/Resolved]
